FAERS Safety Report 25231875 (Version 1)
Quarter: 2025Q2

REPORT INFORMATION
  Report Type: Spontaneous
  Country: US (occurrence: US)
  Receive Date: 20250423
  Receipt Date: 20250423
  Transmission Date: 20250717
  Serious: No
  Sender: MERCK SHARP & DOHME LLC
  Company Number: US-009507513-2278640

PATIENT
  Age: 68 Year
  Sex: Female

DRUGS (1)
  1. POSACONAZOLE [Suspect]
     Active Substance: POSACONAZOLE
     Indication: Scedosporium infection
     Route: 048

REACTIONS (1)
  - Product use in unapproved indication [Unknown]
